FAERS Safety Report 5685021-3 (Version None)
Quarter: 2008Q1

REPORT INFORMATION
  Report Type: 
  Country: None (occurrence: None)
  Receive Date: 20080328
  Receipt Date: 19970925
  Transmission Date: 20080703
  Serious: Yes (Death)
  Sender: FDA-Public Use
  Company Number: ZA-ROCHE-87739

PATIENT
  Age: 52 Year
  Sex: Male

DRUGS (5)
  1. TICLOPIDINE HCL [Suspect]
     Route: 048
     Dates: start: 19970916, end: 19970921
  2. FLUVASTATIN [Concomitant]
     Route: 048
     Dates: start: 19960101, end: 19970921
  3. AMLODIPINE [Concomitant]
     Route: 048
     Dates: start: 19970915, end: 19970921
  4. ASPIRIN [Concomitant]
     Route: 048
     Dates: start: 19970916, end: 19970921
  5. HEPARIN [Concomitant]
     Route: 042
     Dates: start: 19970916, end: 19970917

REACTIONS (1)
  - DEATH [None]
